FAERS Safety Report 5752451-0 (Version None)
Quarter: 2008Q2

REPORT INFORMATION
  Report Type: 
  Country: None (occurrence: None)
  Receive Date: 20080527
  Receipt Date: 20080527
  Transmission Date: 20081010
  Serious: Yes (Other)
  Sender: FDA-Public Use
  Company Number: None

PATIENT
  Age: 49 Year
  Sex: Female
  Weight: 99.7913 kg

DRUGS (1)
  1. FENTANYL TRANSDERMAL SYSTEM [Suspect]
     Indication: BACK PAIN
     Dosage: 1 PATCH EVERY 72 HOURS TRANSDERMAL
     Route: 062
     Dates: start: 20080101

REACTIONS (2)
  - DEVICE FAILURE [None]
  - INCORRECT DOSE ADMINISTERED [None]
